FAERS Safety Report 16214744 (Version 1)
Quarter: 2019Q2

REPORT INFORMATION
  Report Type: Other
  Country: FR (occurrence: FR)
  Receive Date: 20190418
  Receipt Date: 20190418
  Transmission Date: 20190711
  Serious: Yes (Hospitalization)
  Sender: FDA-Public Use
  Company Number: FR-SERVIER-S19003483

PATIENT

DRUGS (1)
  1. ONCASPAR [Suspect]
     Active Substance: PEGASPARGASE
     Indication: LEUKAEMIA
     Route: 042

REACTIONS (3)
  - Hypoalbuminaemia [Recovering/Resolving]
  - Oedema [Recovered/Resolved]
  - Hypoprothrombinaemia [Recovered/Resolved]

NARRATIVE: CASE EVENT DATE: 20190110
